FAERS Safety Report 15053852 (Version 2)
Quarter: 2018Q2

REPORT INFORMATION
  Report Type: Spontaneous
  Country: BR (occurrence: BR)
  Receive Date: 20180622
  Receipt Date: 20180626
  Transmission Date: 20180711
  Serious: Yes (Death, Other)
  Sender: FDA-Public Use
  Company Number: BR-SEATTLE GENETICS-2018SGN01431

PATIENT
  Age: 23 Year
  Sex: Male

DRUGS (4)
  1. CISPLATIN, CYTARABINE, DEXAMETHASONE [Concomitant]
     Indication: HODGKIN^S DISEASE
     Dosage: UNK
  2. BRENTUXIMAB VEDOTIN [Suspect]
     Active Substance: BRENTUXIMAB VEDOTIN
     Indication: HODGKIN^S DISEASE
     Dosage: 1.8 MG/KG, UNK
     Route: 042
  3. BLEOMYCIN, CYCLOPHOSPHAMIDE, DOXORUBICIN HYDROCHLORIDE, ETOPOSIDE, PRE [Concomitant]
     Indication: HODGKIN^S DISEASE
     Dosage: UNK
  4. ADCETRIS [Suspect]
     Active Substance: BRENTUXIMAB VEDOTIN
     Indication: HODGKIN^S DISEASE
     Dosage: 1.8 MG/KG, UNK
     Route: 042

REACTIONS (3)
  - Haemorrhagic stroke [Unknown]
  - Off label use [Unknown]
  - Hodgkin^s disease [Fatal]
